FAERS Safety Report 4672884-3 (Version None)
Quarter: 2005Q2

REPORT INFORMATION
  Report Type: 
  Country: None (occurrence: None)
  Receive Date: 20050524
  Receipt Date: 20050510
  Transmission Date: 20051028
  Serious: Yes (Hospitalization, Disabling)
  Sender: FDA-Public Use
  Company Number: GXKR2005BE01039

PATIENT
  Age: 31 Year
  Sex: Female

DRUGS (1)
  1. AMOXICILLIN [Suspect]
     Indication: PHARYNGITIS
     Dosage: 500 MG, ORAL
     Route: 048

REACTIONS (15)
  - ANAPHYLACTIC SHOCK [None]
  - ANGIONEUROTIC OEDEMA [None]
  - BLINDNESS [None]
  - CEREBRAL HAEMORRHAGE [None]
  - CEREBRAL ISCHAEMIA [None]
  - CIRCULATORY COLLAPSE [None]
  - COLOUR VISION TESTS ABNORMAL [None]
  - COMPUTERISED TOMOGRAM ABNORMAL [None]
  - CSF BACTERIA IDENTIFIED [None]
  - MACULOPATHY [None]
  - RASH [None]
  - RASH MACULO-PAPULAR [None]
  - SELF-MEDICATION [None]
  - VISUAL DISTURBANCE [None]
  - VISUAL FIELD DEFECT [None]
